FAERS Safety Report 9850539 (Version 1)
Quarter: 2013Q4

REPORT INFORMATION
  Report Type: Spontaneous
  Country: US (occurrence: None)
  Receive Date: 20131226
  Receipt Date: 20131226
  Transmission Date: 20140711
  Serious: Yes (Other)
  Sender: FDA-Public Use
  Company Number: PHEH2012US009590

PATIENT
  Age: 45 Year
  Sex: Male
  Weight: 56 kg

DRUGS (1)
  1. AFINITOR (RAD) UNKNOWN [Suspect]
     Indication: RENAL CELL CARCINOMA
     Dates: start: 201201

REACTIONS (3)
  - Renal failure acute [None]
  - Malignant neoplasm progression [None]
  - Neoplasm [None]
